FAERS Safety Report 15732892 (Version 2)
Quarter: 2019Q1

REPORT INFORMATION
  Report Type: Spontaneous
  Country: US (occurrence: US)
  Receive Date: 20181217
  Receipt Date: 20190124
  Transmission Date: 20190417
  Serious: No
  Sender: FDA-Public Use
  Company Number: US-ASTRAZENECA-2018SF58109

PATIENT
  Age: 23423 Day
  Sex: Female
  Weight: 83.6 kg

DRUGS (4)
  1. LYNPARZA [Suspect]
     Active Substance: OLAPARIB
     Indication: OVARIAN CANCER
     Route: 048
     Dates: start: 20180912, end: 20181127
  2. PRILOSEC [Suspect]
     Active Substance: OMEPRAZOLE MAGNESIUM
     Route: 048
  3. DULOXETINE. [Concomitant]
     Active Substance: DULOXETINE
  4. TELMISARTAN. [Concomitant]
     Active Substance: TELMISARTAN

REACTIONS (2)
  - Cough [Recovered/Resolved]
  - Dysphonia [Recovered/Resolved]

NARRATIVE: CASE EVENT DATE: 20180913
